FAERS Safety Report 12177427 (Version 1)
Quarter: 2016Q1

REPORT INFORMATION
  Report Type: Spontaneous
  Country: US (occurrence: US)
  Receive Date: 20160314
  Receipt Date: 20160314
  Transmission Date: 20160526
  Serious: Yes (Other)
  Sender: FDA-Public Use
  Company Number: US-PFIZER INC-2016151516

PATIENT
  Sex: Female

DRUGS (3)
  1. NEURONTIN [Suspect]
     Active Substance: GABAPENTIN
     Dosage: UNK
  2. CELEBREX [Suspect]
     Active Substance: CELECOXIB
     Dosage: UNK
  3. LYRICA [Suspect]
     Active Substance: PREGABALIN
     Dosage: UNK

REACTIONS (8)
  - Fall [Unknown]
  - Swelling [Unknown]
  - Insomnia [Unknown]
  - Renal tubular acidosis [Unknown]
  - Nerve injury [Unknown]
  - Burning sensation [Unknown]
  - Ankle fracture [Unknown]
  - Pain in extremity [Unknown]
